FAERS Safety Report 4355571-0 (Version None)
Quarter: 2004Q2

REPORT INFORMATION
  Report Type: 
  Country: None (occurrence: None)
  Receive Date: 20040510
  Receipt Date: 20030226
  Transmission Date: 20050107
  Serious: Yes (Death)
  Sender: FDA-Public Use
  Company Number: US-GLAXOSMITHKLINE-A0398500A

PATIENT
  Age: 77 Year
  Sex: Male
  Weight: 48.6 kg

DRUGS (15)
  1. PAXIL [Suspect]
     Indication: DEPRESSION
     Dosage: 20MG PER DAY
     Route: 048
     Dates: start: 20001006, end: 20011017
  2. SEREVENT [Concomitant]
  3. MEGACE [Concomitant]
     Dosage: 800MG PER DAY
     Route: 048
  4. TRANXENE [Concomitant]
     Indication: DEPRESSION
  5. RANITIDINE [Concomitant]
     Dosage: 150MG TWICE PER DAY
     Route: 048
  6. THEOPHYLLINE [Concomitant]
     Dosage: 200MG TWICE PER DAY
     Route: 048
  7. PREDNISONE [Concomitant]
  8. DYAZIDE [Concomitant]
  9. FLONASE [Concomitant]
     Route: 045
  10. SODIUM CHLORIDE [Concomitant]
     Route: 045
  11. ALBUTEROL [Concomitant]
  12. ATROVENT [Concomitant]
  13. SLO-BID [Concomitant]
  14. OXYGEN [Concomitant]
  15. OXYGEN [Concomitant]
     Indication: EMPHYSEMA

REACTIONS (8)
  - AGITATION [None]
  - COMPLETED SUICIDE [None]
  - DRUG WITHDRAWAL SYNDROME [None]
  - HALLUCINATION, AUDITORY [None]
  - IRRITABILITY [None]
  - OEDEMA PERIPHERAL [None]
  - PARANOIA [None]
  - SLEEP DISORDER [None]
